FAERS Safety Report 22156126 (Version 1)
Quarter: 2023Q1

REPORT INFORMATION
  Report Type: Spontaneous
  Country: US (occurrence: None)
  Receive Date: 20230330
  Receipt Date: 20230330
  Transmission Date: 20230417
  Serious: No
  Sender: FDA-Public Use
  Company Number: 2023A074020

PATIENT
  Sex: Male
  Weight: 80.3 kg

DRUGS (2)
  1. BRILINTA [Suspect]
     Active Substance: TICAGRELOR
     Indication: Stent placement
     Route: 048
     Dates: start: 20230220, end: 20230327
  2. PLAVIX [Concomitant]
     Active Substance: CLOPIDOGREL BISULFATE
     Dates: start: 20230328

REACTIONS (4)
  - Asthenia [Unknown]
  - Erythema [Unknown]
  - Feeling abnormal [Unknown]
  - Dyspnoea [Unknown]
